FAERS Safety Report 24952257 (Version 3)
Quarter: 2025Q1

REPORT INFORMATION
  Report Type: Spontaneous
  Country: ES (occurrence: ES)
  Receive Date: 20250210
  Receipt Date: 20250319
  Transmission Date: 20250409
  Serious: No
  Sender: PFIZER
  Company Number: ES-PFIZER INC-PV202500014634

PATIENT
  Sex: Female

DRUGS (1)
  1. NGENLA [Suspect]
     Active Substance: SOMATROGON-GHLA

REACTIONS (1)
  - Injection site pain [Not Recovered/Not Resolved]
